FAERS Safety Report 5363129-X (Version None)
Quarter: 2007Q2

REPORT INFORMATION
  Report Type: 
  Country: None (occurrence: None)
  Receive Date: 20070618
  Receipt Date: 20070614
  Transmission Date: 20071010
  Serious: Yes (Life-Threatening, Hospitalization)
  Sender: FDA-Public Use
  Company Number: 2007SP002254

PATIENT
  Age: 76 Year
  Sex: Female

DRUGS (9)
  1. LUNESTA [Suspect]
     Dosage: ORAL
     Route: 048
     Dates: start: 20070606
  2. ARICEPT [Suspect]
     Indication: CONFUSIONAL STATE
     Dosage: ORAL
     Route: 048
     Dates: start: 20070601
  3. ARICEPT [Suspect]
     Indication: DELUSION
     Dosage: ORAL
     Route: 048
     Dates: start: 20070601
  4. NAMENDA [Suspect]
     Indication: CONFUSIONAL STATE
     Dosage: ORAL
     Route: 048
     Dates: start: 20070601
  5. NAMENDA [Suspect]
     Indication: DELUSION
     Dosage: ORAL
     Route: 048
     Dates: start: 20070601
  6. ULTRAM [Concomitant]
  7. LORTAB [Concomitant]
  8. NAPROSYN [Concomitant]
  9. KLONOPIN [Concomitant]

REACTIONS (11)
  - CATATONIA [None]
  - CONFUSIONAL STATE [None]
  - CONVULSION [None]
  - DEPRESSED LEVEL OF CONSCIOUSNESS [None]
  - DISORIENTATION [None]
  - FEELING ABNORMAL [None]
  - GENERAL PHYSICAL HEALTH DETERIORATION [None]
  - HYPERTENSIVE CRISIS [None]
  - INFECTION [None]
  - MYOCARDIAL INFARCTION [None]
  - SPEECH DISORDER [None]
